FAERS Safety Report 22370859 (Version 1)
Quarter: 2023Q2

REPORT INFORMATION
  Report Type: Spontaneous
  Country: IT (occurrence: IT)
  Receive Date: 20230526
  Receipt Date: 20230526
  Transmission Date: 20230721
  Serious: Yes (Other)
  Sender: FDA-Public Use
  Company Number: IT-SUN PHARMACEUTICAL INDUSTRIES LTD-2023RR-390133

PATIENT
  Age: 47 Year
  Sex: Female

DRUGS (5)
  1. ESOMEPRAZOLE [Suspect]
     Active Substance: ESOMEPRAZOLE
     Indication: Product used for unknown indication
     Dosage: 40 MILLIGRAM, QD, ADMINISTRATED EV
     Route: 065
     Dates: start: 20220822, end: 20220830
  2. PANTOPRAZOLE SODIUM [Suspect]
     Active Substance: PANTOPRAZOLE SODIUM
     Indication: Product used for unknown indication
     Dosage: 40 MILLIGRAM, IN TOTAL
     Route: 042
     Dates: start: 20220828, end: 20220828
  3. PREDNISONE [Concomitant]
     Active Substance: PREDNISONE
     Indication: Product used for unknown indication
     Dosage: 5 MILLIGRAM
     Route: 048
     Dates: start: 20220822, end: 20220903
  4. SODIO IODURO 131I [Concomitant]
     Indication: Radioisotope scan
     Dosage: DOSAGE: 3.7 UNIT OF MEASUREMENT: MEGABEQUEREL ROUTE OF ADMINISTRATION: ORAL
     Route: 065
     Dates: start: 20220822, end: 20220822
  5. LEVOTHYROXINE SODIUM [Concomitant]
     Active Substance: LEVOTHYROXINE SODIUM
     Indication: Product used for unknown indication
     Dosage: 75 MICROGRAM
     Route: 048
     Dates: start: 20220822

REACTIONS (3)
  - Angioedema [Unknown]
  - Rash [Recovering/Resolving]
  - Rash [Recovering/Resolving]

NARRATIVE: CASE EVENT DATE: 20220828
